FAERS Safety Report 15385746 (Version 1)
Quarter: 2018Q3

REPORT INFORMATION
  Report Type: Spontaneous
  Country: US (occurrence: US)
  Receive Date: 20180907
  Receipt Date: 20180907
  Transmission Date: 20181010
  Serious: Yes (Other)
  Sender: FDA-Public Use
  Company Number: None

PATIENT
  Age: 9 Year
  Sex: Female
  Weight: 29.25 kg

DRUGS (7)
  1. PENICILLIN VK 500MG [Concomitant]
  2. IBUPROFEN 200MG [Concomitant]
     Active Substance: IBUPROFEN
  3. JADENU [Suspect]
     Active Substance: DEFERASIROX
     Indication: IRON OVERLOAD
     Dosage: ?          OTHER FREQUENCY:2 TABLETS DAILY;?
     Route: 048
     Dates: start: 20180807, end: 20180905
  4. CETIRIZINE [Concomitant]
     Active Substance: CETIRIZINE HYDROCHLORIDE
  5. RANITIDINE. [Concomitant]
     Active Substance: RANITIDINE
  6. OXYCODONE 5 MG [Concomitant]
  7. MIRALAX [Concomitant]
     Active Substance: POLYETHYLENE GLYCOL 3350

REACTIONS (3)
  - Chromaturia [None]
  - Eye colour change [None]
  - Abdominal pain upper [None]

NARRATIVE: CASE EVENT DATE: 20180907
